FAERS Safety Report 21217808 (Version 1)
Quarter: 2022Q3

REPORT INFORMATION
  Report Type: Report from Study
  Country: US (occurrence: US)
  Receive Date: 20220816
  Receipt Date: 20220816
  Transmission Date: 20221027
  Serious: Yes (Other)
  Sender: FDA-Public Use
  Company Number: US-TAKEDA-US202025277

PATIENT
  Sex: Female

DRUGS (1)
  1. HUMAN IMMUNOGLOBULIN G [Suspect]
     Active Substance: HUMAN IMMUNOGLOBULIN G
     Indication: Primary immunodeficiency syndrome
     Dosage: UNK
     Route: 065

REACTIONS (9)
  - Sjogren^s syndrome [Unknown]
  - Autoimmune thyroiditis [Unknown]
  - Neuropathy peripheral [Unknown]
  - COVID-19 [Unknown]
  - Headache [Unknown]
  - Infusion site haemorrhage [Recovered/Resolved]
  - Infusion site pain [Recovered/Resolved]
  - Gastroenteritis viral [Unknown]
  - Pruritus [Unknown]
